FAERS Safety Report 13989440 (Version 1)
Quarter: 2017Q3

REPORT INFORMATION
  Report Type: Spontaneous
  Country: US (occurrence: US)
  Receive Date: 20170920
  Receipt Date: 20170920
  Transmission Date: 20171128
  Serious: No
  Sender: FDA-Public Use
  Company Number: US-BAUSCH-BL-2017-008136

PATIENT
  Age: 3 Year
  Sex: Male

DRUGS (3)
  1. DIAZEPAM. [Suspect]
     Active Substance: DIAZEPAM
     Route: 054
     Dates: start: 20170128
  2. DIAZEPAM. [Suspect]
     Active Substance: DIAZEPAM
     Route: 054
     Dates: start: 20170119
  3. DIAZEPAM. [Suspect]
     Active Substance: DIAZEPAM
     Indication: SEIZURE
     Dosage: (10 MG / 2 SYSTEMS)
     Route: 054

REACTIONS (1)
  - Device use error [Unknown]
